FAERS Safety Report 9907587 (Version 2)
Quarter: 2014Q2

REPORT INFORMATION
  Report Type: Report from Study
  Country: ES (occurrence: ES)
  Receive Date: 20140218
  Receipt Date: 20140406
  Transmission Date: 20141212
  Serious: Yes (Death)
  Sender: FDA-Public Use
  Company Number: ES-US-EMD SERONO, INC.-7270203

PATIENT
  Age: 75 Year
  Sex: Female

DRUGS (3)
  1. REBIF [Suspect]
     Indication: SECONDARY PROGRESSIVE MULTIPLE SCLEROSIS
     Route: 058
  2. EUTHYROX [Concomitant]
     Indication: PRODUCT USED FOR UNKNOWN INDICATION
  3. ENALAPRIL [Concomitant]
     Indication: PRODUCT USED FOR UNKNOWN INDICATION

REACTIONS (3)
  - Cognitive disorder [Fatal]
  - Multiple sclerosis [Fatal]
  - Off label use [Unknown]
